FAERS Safety Report 9494827 (Version 1)
Quarter: 2013Q3

REPORT INFORMATION
  Report Type: Spontaneous
  Country: US (occurrence: US)
  Receive Date: 20130903
  Receipt Date: 20130903
  Transmission Date: 20140515
  Serious: No
  Sender: FDA-Public Use
  Company Number: US-PFIZER INC-2013251326

PATIENT
  Sex: Female

DRUGS (1)
  1. DEPO-MEDROL [Suspect]
     Indication: SPINAL DISORDER
     Dosage: UNK

REACTIONS (3)
  - Increased steroid activity [Unknown]
  - Pain [Unknown]
  - Off label use [Unknown]
